FAERS Safety Report 11792846 (Version 1)
Quarter: 2015Q4

REPORT INFORMATION
  Report Type: Spontaneous
  Country: US (occurrence: None)
  Receive Date: 20151201
  Receipt Date: 20151201
  Transmission Date: 20160305
  Serious: No
  Sender: FDA-Public Use
  Company Number: None

PATIENT

DRUGS (1)
  1. TUBERSOL [Suspect]
     Active Substance: TUBERCULIN PURIFIED PROTEIN DERIVATIVE
     Indication: PHYSICAL EXAMINATION
     Dates: start: 20151116, end: 20151118

REACTIONS (2)
  - Product quality issue [None]
  - False positive investigation result [None]

NARRATIVE: CASE EVENT DATE: 20151118
